FAERS Safety Report 7597313-1 (Version None)
Quarter: 2011Q3

REPORT INFORMATION
  Report Type: 
  Country: None (occurrence: None)
  Receive Date: 20110708
  Receipt Date: 20110427
  Transmission Date: 20111222
  Serious: No
  Sender: FDA-Public Use
  Company Number: US-GLAXOSMITHKLINE-A0924760A

PATIENT
  Age: 71 Year
  Sex: Female

DRUGS (3)
  1. PROAIR HFA [Concomitant]
  2. FLOVENT [Suspect]
     Indication: CHRONIC OBSTRUCTIVE PULMONARY DISEASE
     Dosage: 2PUFF TWICE PER DAY
     Route: 055
     Dates: start: 20100901
  3. SEREVENT [Concomitant]

REACTIONS (1)
  - WEIGHT INCREASED [None]
